FAERS Safety Report 5696079-X (Version None)
Quarter: 2008Q2

REPORT INFORMATION
  Report Type: 
  Country: None (occurrence: None)
  Receive Date: 20080407
  Receipt Date: 20080326
  Transmission Date: 20081010
  Serious: Yes (Other)
  Sender: FDA-Public Use
  Company Number: B0514199A

PATIENT
  Age: 53 Year
  Sex: Male

DRUGS (6)
  1. ZOPHREN [Suspect]
     Indication: PREMEDICATION
     Dosage: 60MG PER DAY
     Route: 042
     Dates: start: 20080211, end: 20080211
  2. GEMCITABINE [Suspect]
     Indication: NEUROENDOCRINE CARCINOMA
     Dosage: 1900MG PER DAY
     Route: 042
     Dates: start: 20080211, end: 20080211
  3. ELOXATIN [Suspect]
     Indication: NEUROENDOCRINE CARCINOMA
     Dosage: 190KIU PER DAY
     Route: 042
     Dates: start: 20080211, end: 20080211
  4. PLITICAN [Suspect]
     Indication: PREMEDICATION
     Dosage: 50MG PER DAY
     Route: 042
     Dates: start: 20080211, end: 20080211
  5. SOLU-MEDROL [Suspect]
     Indication: PREMEDICATION
     Route: 042
     Dates: start: 20080211, end: 20080211
  6. DIAMICRON [Concomitant]
     Route: 065

REACTIONS (2)
  - COUGH [None]
  - ERYTHEMA [None]
